FAERS Safety Report 5679723-2 (Version None)
Quarter: 2008Q1

REPORT INFORMATION
  Report Type: 
  Country: None (occurrence: None)
  Receive Date: 20080321
  Receipt Date: 20080311
  Transmission Date: 20080703
  Serious: Yes (Death)
  Sender: FDA-Public Use
  Company Number: GXKR2007GB08599

PATIENT
  Age: 67 Year
  Sex: Male

DRUGS (27)
  1. DOXYCYCLINE [Suspect]
     Dosage: ORAL
     Route: 048
  2. RIMONABANT (RIMONABANT) UNKNOWN [Suspect]
     Indication: WEIGHT DECREASED
     Dosage: 20 MG, QD, ORAL
     Route: 048
  3. ALLOPURINOL [Concomitant]
  4. AMOXICILLIN [Concomitant]
  5. ASPIRIN [Concomitant]
  6. ATORVASTATIN CALCIUM [Concomitant]
  7. BUDESONIDE [Concomitant]
  8. CHLORHEXIDINE GLUCONATE [Concomitant]
  9. CIALIS [Concomitant]
  10. DAKTACORT (HYDROCORTISONE, MICONAZOLE NITRATE) [Concomitant]
  11. DIPROBASE OINTMENT (PARAFFIN, LIQUID, WHITE SOFT PARAFFIN) OINTMENT [Concomitant]
  12. DOUBLEBASE L [Concomitant]
  13. ERYTHROMYCIN [Concomitant]
  14. FORMOTEROL (FORMOTEROL) [Concomitant]
  15. FORMOTEROL FUMRATE (FORMOTEROL FUMRATE) [Concomitant]
  16. FUROSEMIDE [Concomitant]
  17. GLIPIZIDE [Concomitant]
  18. HYDROCHLOROTHIAZIDE [Concomitant]
  19. LANSOPRAZOLE [Concomitant]
  20. LISINOPRIL [Concomitant]
  21. METFORMIN HCL [Concomitant]
  22. MICONAZOLE [Concomitant]
  23. PREDNISOLONE [Concomitant]
  24. RAMIPRIL [Concomitant]
  25. ROSIGLITAZONE [Concomitant]
  26. SALAMOL (SALBUTAMOL SULFATE) (SALBUTAMOL SULFATE) [Concomitant]
  27. TIOTROPIUM BROMIDE (TRIOTROPIUM BROMIDE) [Concomitant]

REACTIONS (8)
  - DERMATITIS EXFOLIATIVE [None]
  - DRUG INTERACTION [None]
  - HYPOTENSION [None]
  - MULTI-ORGAN DISORDER [None]
  - PNEUMONIA [None]
  - PNEUMONIA FUNGAL [None]
  - RENAL FAILURE ACUTE [None]
  - TOXIC SHOCK SYNDROME [None]
